FAERS Safety Report 11145742 (Version 2)
Quarter: 2015Q2

REPORT INFORMATION
  Report Type: Spontaneous
  Country: BR (occurrence: BR)
  Receive Date: 20150528
  Receipt Date: 20150618
  Transmission Date: 20150821
  Serious: Yes (Other)
  Sender: FDA-Public Use
  Company Number: BR-PFIZER INC-2015178314

PATIENT
  Sex: Female

DRUGS (3)
  1. PRISTIQ EXTENDED RELEASE [Suspect]
     Active Substance: DESVENLAFAXINE SUCCINATE
     Dosage: 100 MG, 3X/DAY
     Route: 048
  2. PRISTIQ EXTENDED RELEASE [Suspect]
     Active Substance: DESVENLAFAXINE SUCCINATE
     Dosage: 100 MG, 2X/DAY
     Route: 048
     Dates: end: 2015
  3. PRISTIQ EXTENDED RELEASE [Suspect]
     Active Substance: DESVENLAFAXINE SUCCINATE
     Dosage: 200 MG, UNK
     Route: 048
     Dates: start: 2014

REACTIONS (10)
  - Dyspnoea [Unknown]
  - Anxiety [Unknown]
  - Hypoaesthesia [Unknown]
  - Nausea [Unknown]
  - Dizziness [Unknown]
  - Headache [Unknown]
  - Night sweats [Unknown]
  - Bipolar disorder [Unknown]
  - Miosis [Unknown]
  - Tachycardia [Unknown]

NARRATIVE: CASE EVENT DATE: 2015
